FAERS Safety Report 9401503 (Version 5)
Quarter: 2014Q1

REPORT INFORMATION
  Report Type: Report from Study
  Country: CA (occurrence: CA)
  Receive Date: 20130716
  Receipt Date: 20140220
  Transmission Date: 20141002
  Serious: Yes (Hospitalization, Other)
  Sender: FDA-Public Use
  Company Number: CA-ROCHE-1246123

PATIENT
  Age: 58 Year
  Sex: Female
  Weight: 47.6 kg

DRUGS (8)
  1. RITUXAN [Suspect]
     Indication: RHEUMATOID ARTHRITIS
     Dosage: DAY 1, DAY 15
     Route: 042
     Dates: start: 20080118
  2. RITUXAN [Suspect]
     Dosage: LAST INFUSION ON 26/JUL/2013.
     Route: 042
     Dates: start: 20090904
  3. DIPHENHYDRAMINE HCL [Concomitant]
     Indication: PREMEDICATION
     Route: 048
     Dates: start: 20090904
  4. ACETAMINOPHEN [Concomitant]
     Indication: PREMEDICATION
     Route: 048
     Dates: start: 20090904
  5. NOVO-SPIROZINE [Concomitant]
     Indication: BLOOD PRESSURE
  6. ARTHROTEC [Concomitant]
     Indication: RHEUMATOID ARTHRITIS
     Route: 048
  7. METHYLPREDNISOLONE [Concomitant]
     Indication: PREMEDICATION
     Route: 042
     Dates: start: 20090904
  8. SPIRONOLACTONE [Concomitant]
     Route: 048

REACTIONS (6)
  - Ligament disorder [Recovered/Resolved]
  - Joint destruction [Recovered/Resolved]
  - Impaired healing [Not Recovered/Not Resolved]
  - Ankle deformity [Unknown]
  - Joint stiffness [Not Recovered/Not Resolved]
  - Joint swelling [Not Recovered/Not Resolved]
